FAERS Safety Report 25141758 (Version 1)
Quarter: 2025Q1

REPORT INFORMATION
  Report Type: Spontaneous
  Country: JP (occurrence: JP)
  Receive Date: 20250331
  Receipt Date: 20250331
  Transmission Date: 20250408
  Serious: Yes (Other)
  Sender: MERCK SHARP & DOHME LLC
  Company Number: JP-009507513-2269781

PATIENT

DRUGS (1)
  1. KEYTRUDA [Suspect]
     Active Substance: PEMBROLIZUMAB
     Dosage: 200MG ONCE EVERY 3 WEEKS
     Route: 041

REACTIONS (5)
  - Duodenal ulcer [Unknown]
  - Hyperthyroidism [Unknown]
  - Uveitis [Unknown]
  - Polymyalgia rheumatica [Unknown]
  - Type 1 diabetes mellitus [Unknown]
